FAERS Safety Report 9122520 (Version 1)
Quarter: 2013Q1

REPORT INFORMATION
  Report Type: Spontaneous
  Country: FR (occurrence: FR)
  Receive Date: 20130115
  Receipt Date: 20130115
  Transmission Date: 20140127
  Serious: Yes (Hospitalization, Other)
  Sender: FDA-Public Use
  Company Number: FR-BRISTOL-MYERS SQUIBB COMPANY-17276064

PATIENT
  Age: 82 Year
  Sex: Female

DRUGS (9)
  1. COUMADIN TABS [Suspect]
     Route: 048
  2. KARDEGIC [Suspect]
     Dosage: KARDEGIC POWDER FOR ORAL SOLUTION IN SACHET-DOSE
     Route: 048
  3. PROZAC [Suspect]
  4. FUROSEMIDE [Concomitant]
  5. OMEPRAZOLE [Concomitant]
  6. LYRICA [Concomitant]
  7. EXELON [Concomitant]
  8. ZOLPIDEM [Concomitant]
  9. CACIT D3 [Concomitant]

REACTIONS (4)
  - Rectal haemorrhage [Recovered/Resolved]
  - Melaena [Recovered/Resolved]
  - Anaemia [Recovering/Resolving]
  - Diverticulum intestinal [Unknown]
